FAERS Safety Report 8289936-1 (Version None)
Quarter: 2012Q2

REPORT INFORMATION
  Report Type: 
  Country: None (occurrence: None)
  Receive Date: 20120417
  Receipt Date: 20120402
  Transmission Date: 20120825
  Serious: Yes (Hospitalization)
  Sender: FDA-Public Use
  Company Number: GB-ROCHE-1055879

PATIENT
  Sex: Female
  Weight: 84 kg

DRUGS (2)
  1. AZATHIOPRINE [Concomitant]
     Dates: end: 20111231
  2. ACTEMRA [Suspect]
     Indication: RHEUMATOID ARTHRITIS
     Dosage: DOSE INTERRUPTED. LAST DOSE PRIOR TO SAE: 03/NOV/2011
     Route: 065
     Dates: start: 20110616, end: 20111201

REACTIONS (5)
  - MUSCULOSKELETAL PAIN [None]
  - BURSA DISORDER [None]
  - ABDOMINAL PAIN [None]
  - PULMONARY EMBOLISM [None]
  - INFECTION [None]
